FAERS Safety Report 17577242 (Version 2)
Quarter: 2020Q1

REPORT INFORMATION
  Report Type: Spontaneous
  Country: NL (occurrence: NL)
  Receive Date: 20200324
  Receipt Date: 20200327
  Transmission Date: 20200409
  Serious: Yes (Death, Other)
  Sender: FDA-Public Use
  Company Number: NL-TEVA-2020-NL-1207752

PATIENT
  Age: 80 Year
  Sex: Male
  Weight: 70 kg

DRUGS (5)
  1. ESOMEPRAZOL [Concomitant]
     Active Substance: ESOMEPRAZOLE
     Dosage: STOMACH-RESISTANT TABLET, 20 MG (MILLIGRAMS)
  2. FUROSEMIDE. [Concomitant]
     Active Substance: FUROSEMIDE
     Dosage: TABLET, 40 MG (MILLIGRAM)
  3. COTRIMOXAZOL [Concomitant]
     Active Substance: SULFAMETHOXAZOLE\TRIMETHOPRIM
     Dosage: 480MG
  4. DEXAMETHASONE. [Suspect]
     Active Substance: DEXAMETHASONE
     Indication: INTERSTITIAL LUNG DISEASE
     Dosage: 3 X 1.5 MG TABLETS ONCE A DAY, 4 MG
     Route: 065
     Dates: start: 2019
  5. MAGNESIUMHYDROXIDE [Concomitant]
     Dosage: CHEWABLE TABLET, 724 MG (MILLIGRAMS)

REACTIONS (6)
  - Intestinal perforation [Fatal]
  - Fatigue [Unknown]
  - Oedema peripheral [Unknown]
  - Dyspnoea [Unknown]
  - Diabetes mellitus [Unknown]
  - Face oedema [Unknown]

NARRATIVE: CASE EVENT DATE: 20200224
